FAERS Safety Report 5597066-2 (Version None)
Quarter: 2007Q4

REPORT INFORMATION
  Report Type: 
  Country: None (occurrence: None)
  Receive Date: 20071221
  Receipt Date: 20071121
  Transmission Date: 20080405
  Serious: No
  Sender: FDA-Public Use
  Company Number: SPV1-2007-05021

PATIENT
  Age: 47 Year
  Sex: Female
  Weight: 71.7 kg

DRUGS (4)
  1. VYVANSE [Suspect]
     Indication: ATTENTION DEFICIT/HYPERACTIVITY DISORDER
     Dosage: 30 MG, 1X/DAY:QD, ORAL
     Route: 048
     Dates: start: 20071029
  2. ASPIRIN [Concomitant]
  3. GLUCOSAMINE + CHONDROITIN (CHONDROITIN SULFATE, GLUCOSAMINE) [Concomitant]
  4. CHOLESTEROL- AND TRIGLYCERIDE REDUCERS [Concomitant]

REACTIONS (1)
  - PARAESTHESIA ORAL [None]
